FAERS Safety Report 7332739-2 (Version None)
Quarter: 2011Q1

REPORT INFORMATION
  Report Type: 
  Country: None (occurrence: None)
  Receive Date: 20110304
  Receipt Date: 20100616
  Transmission Date: 20110831
  Serious: No
  Sender: FDA-Public Use
  Company Number: US-TYCO HEALTHCARE/MALLINCKRODT-T201001458

PATIENT
  Sex: Male

DRUGS (1)
  1. RESTORIL [Suspect]
     Indication: INSOMNIA
     Dosage: 15 MG, TWO DOSES IN PM
     Route: 048
     Dates: start: 20100615, end: 20100615

REACTIONS (3)
  - DRUG INEFFECTIVE [None]
  - YAWNING [None]
  - INCORRECT DOSE ADMINISTERED [None]
